FAERS Safety Report 19088899 (Version 1)
Quarter: 2021Q2

REPORT INFORMATION
  Report Type: Spontaneous
  Country: US (occurrence: US)
  Receive Date: 20210403
  Receipt Date: 20210403
  Transmission Date: 20210717
  Serious: No
  Sender: FDA-Public Use
  Company Number: US-SA-2021SA109124

PATIENT
  Sex: Male

DRUGS (1)
  1. DUPIXENT [Suspect]
     Active Substance: DUPILUMAB
     Indication: PEMPHIGOID

REACTIONS (8)
  - Eye discharge [Unknown]
  - Head discomfort [Unknown]
  - Product use in unapproved indication [Unknown]
  - Ocular discomfort [Unknown]
  - Erythema of eyelid [Unknown]
  - Eye disorder [Unknown]
  - Nasal congestion [Unknown]
  - Dacryostenosis acquired [Unknown]
